FAERS Safety Report 4390686-2 (Version None)
Quarter: 2004Q2

REPORT INFORMATION
  Report Type: 
  Country: None (occurrence: None)
  Receive Date: 20040630
  Receipt Date: 20040617
  Transmission Date: 20050107
  Serious: Yes (Other)
  Sender: FDA-Public Use
  Company Number: HQWYE076024MAY04

PATIENT
  Age: 47 Year
  Sex: Male
  Weight: 99.88 kg

DRUGS (1)
  1. ADVIL [Suspect]
     Indication: PYREXIA
     Dosage: 2 CAPSULES ONCE, ORAL
     Route: 048
     Dates: start: 20040517, end: 20040517

REACTIONS (9)
  - CHILLS [None]
  - HYPERSENSITIVITY [None]
  - OEDEMA PERIPHERAL [None]
  - PAIN [None]
  - PITTING OEDEMA [None]
  - RASH GENERALISED [None]
  - RHONCHI [None]
  - SWELLING FACE [None]
  - URTICARIA [None]
